FAERS Safety Report 7904049-3 (Version None)
Quarter: 2011Q4

REPORT INFORMATION
  Report Type: 
  Country: None (occurrence: None)
  Receive Date: 20111109
  Receipt Date: 20111107
  Transmission Date: 20120403
  Serious: Yes (Hospitalization)
  Sender: FDA-Public Use
  Company Number: IT-PFIZER INC-2011271514

PATIENT

DRUGS (2)
  1. SUTENT [Suspect]
     Indication: RENAL CANCER
     Dosage: 50 MG, 1X/DAY
     Route: 048
     Dates: start: 20110704, end: 20110719
  2. LIMPIDEX [Concomitant]
     Dosage: 30 MG, UNK
     Route: 048
     Dates: start: 20110610, end: 20110619

REACTIONS (1)
  - GASTROINTESTINAL TOXICITY [None]
